FAERS Safety Report 6148449-3 (Version None)
Quarter: 2009Q2

REPORT INFORMATION
  Report Type: 
  Country: None (occurrence: None)
  Receive Date: 20090408
  Receipt Date: 20090326
  Transmission Date: 20091009
  Serious: Yes (Other)
  Sender: FDA-Public Use
  Company Number: NL-PFIZER INC-2008087875

PATIENT

DRUGS (14)
  1. CHAMPIX [Suspect]
     Dosage: UNK
     Route: 048
     Dates: start: 20080110, end: 20080313
  2. VALSARTAN [Concomitant]
     Dosage: UNK
     Route: 048
     Dates: start: 20040101
  3. METFORMIN HYDROCHLORIDE [Concomitant]
     Dosage: UNK
     Route: 048
     Dates: start: 20080410
  4. GLICLAZIDE [Concomitant]
     Dosage: UNK
     Route: 048
     Dates: start: 20060101
  5. RANITIDINE [Concomitant]
     Dosage: UNK
     Route: 048
     Dates: start: 20040101
  6. CRESTOR [Concomitant]
     Dosage: UNK
     Route: 048
     Dates: start: 20040101
  7. MELOXICAM [Concomitant]
     Dosage: UNK
     Route: 048
     Dates: start: 20040101
  8. TRAMADOL HCL [Concomitant]
     Dosage: UNK
     Route: 048
     Dates: start: 20070801
  9. SERETIDE [Concomitant]
     Dosage: UNK
     Dates: start: 20040101
  10. SPIRIVA [Concomitant]
     Dosage: UNK
     Dates: start: 20070101
  11. HYDROCHLOROTHIAZIDE [Concomitant]
     Dosage: UNK
     Route: 048
     Dates: start: 20040101
  12. DILTIAZEM HYDROCHLORIDE [Concomitant]
     Dosage: UNK
     Route: 048
     Dates: start: 20050101
  13. ACETYLCYSTEINE [Concomitant]
     Dosage: UNK
     Route: 048
     Dates: start: 20050101
  14. TRISPORAL [Concomitant]
     Dosage: UNK
     Route: 048
     Dates: start: 20080201, end: 20080211

REACTIONS (1)
  - RENAL FAILURE [None]
